FAERS Safety Report 23592209 (Version 2)
Quarter: 2024Q1

REPORT INFORMATION
  Report Type: Report from Study
  Country: KR (occurrence: KR)
  Receive Date: 20240304
  Receipt Date: 20240308
  Transmission Date: 20240410
  Serious: Yes (Other)
  Sender: FDA-Public Use
  Company Number: KR-002147023-NVSC2024KR044952

PATIENT
  Age: 76 Year
  Sex: Female

DRUGS (19)
  1. BEOVU [Suspect]
     Active Substance: BROLUCIZUMAB-DBLL
     Indication: Neovascular age-related macular degeneration
     Dosage: 6 MG
     Route: 031
     Dates: start: 20230330, end: 20230330
  2. BEOVU [Suspect]
     Active Substance: BROLUCIZUMAB-DBLL
     Dosage: 6 MG
     Route: 031
     Dates: start: 20230427, end: 20230427
  3. BEOVU [Suspect]
     Active Substance: BROLUCIZUMAB-DBLL
     Dosage: 6 MG
     Route: 031
     Dates: start: 20230525, end: 20230525
  4. BEOVU [Suspect]
     Active Substance: BROLUCIZUMAB-DBLL
     Dosage: 6 MG
     Route: 031
     Dates: start: 20230807, end: 20230807
  5. VIGAMOX [Concomitant]
     Active Substance: MOXIFLOXACIN HYDROCHLORIDE
     Indication: Prophylaxis
     Dosage: 1 DRP
     Route: 065
     Dates: start: 20230330, end: 20230406
  6. VIGAMOX [Concomitant]
     Active Substance: MOXIFLOXACIN HYDROCHLORIDE
     Dosage: 1 DRP
     Route: 065
     Dates: start: 20230427, end: 20230504
  7. VIGAMOX [Concomitant]
     Active Substance: MOXIFLOXACIN HYDROCHLORIDE
     Dosage: 1 DRP
     Route: 065
     Dates: start: 20230525, end: 20230601
  8. VIGAMOX [Concomitant]
     Active Substance: MOXIFLOXACIN HYDROCHLORIDE
     Dosage: 1 DRP
     Route: 065
     Dates: start: 20230807, end: 20230814
  9. TROPHERINE [Concomitant]
     Indication: Investigation
     Dosage: UNK
     Route: 065
     Dates: start: 20230330, end: 20230330
  10. TROPHERINE [Concomitant]
     Dosage: UNK
     Route: 065
     Dates: start: 20230427, end: 20230427
  11. TROPHERINE [Concomitant]
     Dosage: UNK
     Route: 065
     Dates: start: 20230525, end: 20230525
  12. TROPHERINE [Concomitant]
     Dosage: UNK
     Route: 065
     Dates: start: 20230807, end: 20230807
  13. PARACAINE [Concomitant]
     Active Substance: PROPARACAINE HYDROCHLORIDE
     Indication: Investigation
     Dosage: UNK
     Route: 065
     Dates: start: 20230330, end: 20230330
  14. PARACAINE [Concomitant]
     Active Substance: PROPARACAINE HYDROCHLORIDE
     Dosage: UNK
     Route: 065
     Dates: start: 20230427, end: 20230427
  15. PARACAINE [Concomitant]
     Active Substance: PROPARACAINE HYDROCHLORIDE
     Dosage: UNK
     Route: 065
     Dates: start: 20230528, end: 20230528
  16. PARACAINE [Concomitant]
     Active Substance: PROPARACAINE HYDROCHLORIDE
     Dosage: UNK
     Route: 065
     Dates: start: 20230807, end: 20230807
  17. COSOPT [Concomitant]
     Active Substance: DORZOLAMIDE HYDROCHLORIDE\TIMOLOL MALEATE
     Indication: Angle closure glaucoma
     Dosage: UNK
     Route: 065
     Dates: start: 20230429, end: 20230509
  18. COMBIGAN [Concomitant]
     Active Substance: BRIMONIDINE TARTRATE\TIMOLOL MALEATE
     Indication: Angle closure glaucoma
     Dosage: UNK
     Route: 065
     Dates: start: 20230429, end: 20230808
  19. TRUSOPT [Concomitant]
     Active Substance: DORZOLAMIDE HYDROCHLORIDE
     Indication: Angle closure glaucoma
     Dosage: UNK
     Route: 065
     Dates: start: 20230522, end: 20230612

REACTIONS (1)
  - Angle closure glaucoma [Recovered/Resolved]

NARRATIVE: CASE EVENT DATE: 20230429
